FAERS Safety Report 9206506 (Version 2)
Quarter: 2013Q2

REPORT INFORMATION
  Report Type: Report from Study
  Country: US (occurrence: US)
  Receive Date: 20130403
  Receipt Date: 20130503
  Transmission Date: 20140414
  Serious: Yes (Hospitalization)
  Sender: FDA-Public Use
  Company Number: US-ASTELLAS-2013US003517

PATIENT
  Age: 71 Year
  Sex: Female
  Weight: 60 kg

DRUGS (7)
  1. ERLOTINIB TABLET [Suspect]
     Indication: NON-SMALL CELL LUNG CANCER
     Dosage: 150 MG, UID/QD
     Route: 048
     Dates: start: 20121001, end: 20121202
  2. ERLOTINIB TABLET [Suspect]
     Dosage: 150 MG, UID/QD
     Route: 048
     Dates: start: 20121020, end: 20121227
  3. ERLOTINIB TABLET [Suspect]
     Dosage: 75 MG, UID/QD
     Route: 048
     Dates: start: 20121221
  4. ERLOTINIB TABLET [Suspect]
     Dosage: UNK
     Route: 048
     Dates: end: 20130201
  5. ERLOTINIB TABLET [Suspect]
     Dosage: 75 MG, UID/QD
     Route: 048
     Dates: start: 20130204
  6. ZOMETA [Concomitant]
     Indication: METASTASES TO BONE
     Dosage: UNK
     Route: 042
     Dates: start: 20121101
  7. ARIMIDEX [Concomitant]
     Indication: BREAST CANCER
     Dosage: 1 MG, UID/QD
     Route: 048
     Dates: start: 20110501

REACTIONS (14)
  - Blood potassium decreased [Recovering/Resolving]
  - Nausea [Recovered/Resolved]
  - Vomiting [Recovered/Resolved]
  - Dehydration [Recovered/Resolved]
  - Diarrhoea [Recovered/Resolved]
  - Hot flush [Not Recovered/Not Resolved]
  - Hyperaesthesia [Not Recovered/Not Resolved]
  - Rash [Not Recovered/Not Resolved]
  - Diarrhoea [Not Recovered/Not Resolved]
  - Erythema [Not Recovered/Not Resolved]
  - Localised infection [Not Recovered/Not Resolved]
  - Abdominal distension [Not Recovered/Not Resolved]
  - Nail discolouration [Not Recovered/Not Resolved]
  - Alopecia [Recovered/Resolved]
